FAERS Safety Report 23631874 (Version 1)
Quarter: 2024Q1

REPORT INFORMATION
  Report Type: Spontaneous
  Country: US (occurrence: None)
  Receive Date: 20240313
  Receipt Date: 20240313
  Transmission Date: 20240410
  Serious: Yes (Hospitalization)
  Sender: FDA-Public Use
  Company Number: None

PATIENT
  Age: 72 Year
  Sex: Male
  Weight: 122.85 kg

DRUGS (1)
  1. DEFINITY [Suspect]
     Active Substance: PERFLUTREN
     Indication: Cardiac failure congestive
     Dosage: FREQUENCY : AS NEEDED;?
     Route: 040
     Dates: start: 20240313, end: 20240313

REACTIONS (4)
  - Chest pain [None]
  - Fatigue [None]
  - Vision blurred [None]
  - Infusion related reaction [None]

NARRATIVE: CASE EVENT DATE: 20240313
